FAERS Safety Report 6980863-6 (Version None)
Quarter: 2010Q3

REPORT INFORMATION
  Report Type: 
  Country: None (occurrence: None)
  Receive Date: 20100914
  Receipt Date: 20100830
  Transmission Date: 20110219
  Serious: Yes (Hospitalization)
  Sender: FDA-Public Use
  Company Number: A0880677A

PATIENT
  Sex: Female

DRUGS (1)
  1. ARZERRA [Suspect]
     Route: 042

REACTIONS (2)
  - ARRHYTHMIA [None]
  - PYREXIA [None]
